FAERS Safety Report 4704706-6 (Version None)
Quarter: 2005Q2

REPORT INFORMATION
  Report Type: 
  Country: None (occurrence: None)
  Receive Date: 20050630
  Receipt Date: 20050627
  Transmission Date: 20051028
  Serious: Yes (Other)
  Sender: FDA-Public Use
  Company Number: US-MERCK-0506USA03828

PATIENT
  Age: 83 Year
  Sex: Female

DRUGS (1)
  1. PRINZIDE [Suspect]
     Indication: HYPERTENSION
     Route: 048
     Dates: start: 20050519, end: 20050606

REACTIONS (2)
  - ANGIONEUROTIC OEDEMA [None]
  - CONVULSION [None]
